FAERS Safety Report 9949799 (Version 1)
Quarter: 2014Q1

REPORT INFORMATION
  Report Type: Spontaneous
  Country: US (occurrence: US)
  Receive Date: 20140304
  Receipt Date: 20140304
  Transmission Date: 20141002
  Serious: No
  Sender: FDA-Public Use
  Company Number: US-ABBVIE-13P-163-1065486-00

PATIENT
  Sex: Female
  Weight: 79.45 kg

DRUGS (13)
  1. HUMIRA [Suspect]
     Indication: RHEUMATOID ARTHRITIS
     Dates: start: 2005
  2. BIAXIN [Suspect]
     Indication: SINUSITIS
  3. NAPROSYN [Concomitant]
     Indication: RHEUMATOID ARTHRITIS
  4. HYDROCODONE [Concomitant]
     Indication: RHEUMATOID ARTHRITIS
  5. METHOTREXATE [Concomitant]
     Indication: RHEUMATOID ARTHRITIS
  6. AMBIEN [Concomitant]
     Indication: SLEEP DISORDER
  7. FOLIC ACID [Concomitant]
     Indication: VITAMIN SUPPLEMENTATION
  8. ALENDRONATE [Concomitant]
     Indication: PRODUCT USED FOR UNKNOWN INDICATION
  9. CERTALINE [Concomitant]
     Indication: DEPRESSION
  10. MULTIPLE VITAMINS [Concomitant]
     Indication: SUPPLEMENTATION THERAPY
  11. VITAMIN D3 [Concomitant]
     Indication: SUPPLEMENTATION THERAPY
  12. LEPGINE [Concomitant]
     Indication: CATARACT
  13. CALCIUM [Concomitant]
     Indication: SUPPLEMENTATION THERAPY

REACTIONS (4)
  - Arthritis [Not Recovered/Not Resolved]
  - Rash [Recovered/Resolved]
  - Sinusitis [Recovered/Resolved]
  - Arthritis [Not Recovered/Not Resolved]
